FAERS Safety Report 10586096 (Version 1)
Quarter: 2014Q4

REPORT INFORMATION
  Report Type: Spontaneous
  Country: FR (occurrence: FR)
  Receive Date: 20141115
  Receipt Date: 20141115
  Transmission Date: 20150529
  Serious: Yes (Hospitalization, Other)
  Sender: FDA-Public Use
  Company Number: FR-ASTRAZENECA-2014SE84964

PATIENT
  Age: 22810 Day
  Sex: Female

DRUGS (7)
  1. VALSARTAN. [Concomitant]
     Active Substance: VALSARTAN
     Dates: start: 201406, end: 20140924
  2. ATENOLOL. [Concomitant]
     Active Substance: ATENOLOL
  3. LEVOTHYROX [Concomitant]
     Active Substance: LEVOTHYROXINE
     Dosage: 100 MICROGRAMS EVERY OTHER DAY AND 75 MICROGRAMS THE OTHER DAYS
  4. MOPRAL [Suspect]
     Active Substance: OMEPRAZOLE SODIUM
     Route: 048
     Dates: start: 20140916
  5. INEXIUM [Suspect]
     Active Substance: ESOMEPRAZOLE
     Route: 048
     Dates: start: 20140924
  6. FUROSEMIDE. [Concomitant]
     Active Substance: FUROSEMIDE
  7. MIRCERA [Concomitant]
     Active Substance: PEGZEREPOETIN ALFA
     Dosage: 100 UG, 1 INJECTION MONTHLY
     Dates: start: 201406

REACTIONS (19)
  - Urticaria [Unknown]
  - Leukocyturia [Unknown]
  - Tubulointerstitial nephritis [Unknown]
  - Chronic kidney disease [Unknown]
  - Nephroangiosclerosis [Unknown]
  - Rash pruritic [Recovered/Resolved]
  - Drug-induced liver injury [Unknown]
  - Drug reaction with eosinophilia and systemic symptoms [Recovered/Resolved]
  - Angiotensin converting enzyme increased [Unknown]
  - Eosinophilia [Recovered/Resolved]
  - Hepatocellular injury [Recovered/Resolved]
  - Therapy cessation [Unknown]
  - Cholestasis [Unknown]
  - Sarcoidosis [Unknown]
  - Acute kidney injury [Not Recovered/Not Resolved]
  - Rash maculo-papular [Unknown]
  - Autoimmune hepatitis [Unknown]
  - Nephritis allergic [Unknown]
  - Hepatic steatosis [Unknown]

NARRATIVE: CASE EVENT DATE: 20140825
